FAERS Safety Report 21375128 (Version 1)
Quarter: 2022Q3

REPORT INFORMATION
  Report Type: Spontaneous
  Country: US (occurrence: None)
  Receive Date: 20220925
  Receipt Date: 20220925
  Transmission Date: 20221026
  Serious: Yes (Other)
  Sender: FDA-Public Use
  Company Number: None

PATIENT
  Age: 46 Year
  Sex: Male
  Weight: 104.3 kg

DRUGS (7)
  1. BEBTELOVIMAB [Suspect]
     Active Substance: BEBTELOVIMAB
     Indication: COVID-19
     Dosage: OTHER FREQUENCY : ONCE;?
     Route: 042
     Dates: start: 20220923, end: 20220923
  2. COREG [Concomitant]
     Active Substance: CARVEDILOL
  3. LASIX [Concomitant]
     Active Substance: FUROSEMIDE
  4. EPLERENONE [Concomitant]
     Active Substance: EPLERENONE
  5. LACTULOSE [Concomitant]
     Active Substance: LACTULOSE
  6. THIAMINE [Concomitant]
     Active Substance: THIAMINE
  7. VARENICLINE [Concomitant]
     Active Substance: VARENICLINE

REACTIONS (3)
  - Back pain [None]
  - Muscle spasms [None]
  - Infusion related reaction [None]

NARRATIVE: CASE EVENT DATE: 20220923
